FAERS Safety Report 8376007-9 (Version None)
Quarter: 2012Q2

REPORT INFORMATION
  Report Type: 
  Country: None (occurrence: None)
  Receive Date: 20120522
  Receipt Date: 20120515
  Transmission Date: 20120825
  Serious: Yes (Hospitalization, Other)
  Sender: FDA-Public Use
  Company Number: PHEH2012US010154

PATIENT
  Sex: Female

DRUGS (5)
  1. ZOCOR [Concomitant]
     Dosage: UNK
  2. NAMENDA [Concomitant]
     Dosage: UNK
  3. DIOVAN HCT [Suspect]
     Dosage: (320 MG VALS AND 25 MG HYDRO)
  4. DONEPEZIL HCL [Concomitant]
     Dosage: UNK
  5. METOPROLOL [Concomitant]
     Dosage: UNK

REACTIONS (2)
  - INTRACRANIAL ANEURYSM [None]
  - MEMORY IMPAIRMENT [None]
